FAERS Safety Report 19440500 (Version 1)
Quarter: 2021Q2

REPORT INFORMATION
  Report Type: Spontaneous
  Country: US (occurrence: US)
  Receive Date: 20210621
  Receipt Date: 20210621
  Transmission Date: 20210717
  Serious: Yes (Other)
  Sender: FDA-Public Use
  Company Number: US-ROCHE-2849625

PATIENT
  Sex: Female

DRUGS (1)
  1. LUCENTIS [Suspect]
     Active Substance: RANIBIZUMAB
     Indication: NEOVASCULAR AGE-RELATED MACULAR DEGENERATION
     Route: 065
     Dates: start: 20190822

REACTIONS (15)
  - Pain [Unknown]
  - Influenza [Unknown]
  - Eye disorder [Unknown]
  - Cataract [Unknown]
  - Eye pain [Unknown]
  - Cholangitis [Unknown]
  - Gastritis [Unknown]
  - Viral infection [Unknown]
  - Colitis microscopic [Unknown]
  - Migraine [Unknown]
  - Panic attack [Unknown]
  - Diarrhoea [Unknown]
  - Gastric disorder [Unknown]
  - Thyroid disorder [Unknown]
  - Rhinorrhoea [Unknown]
